FAERS Safety Report 14103513 (Version 2)
Quarter: 2020Q1

REPORT INFORMATION
  Report Type: Spontaneous
  Country: US (occurrence: US)
  Receive Date: 20171018
  Receipt Date: 20200309
  Transmission Date: 20200409
  Serious: Yes (Other)
  Sender: FDA-Public Use
  Company Number: US-AMGEN-USASP2017079004

PATIENT
  Age: 73 Year
  Sex: Female

DRUGS (1)
  1. PROLIA [Suspect]
     Active Substance: DENOSUMAB
     Indication: OSTEOPOROSIS
     Dosage: 60 MILLIGRAM, Q6MO
     Route: 065
     Dates: start: 201610

REACTIONS (13)
  - Mobility decreased [Unknown]
  - Neuropathy peripheral [Not Recovered/Not Resolved]
  - Vascular graft [Unknown]
  - Waist circumference increased [Not Recovered/Not Resolved]
  - Intervertebral disc protrusion [Not Recovered/Not Resolved]
  - Bronchitis [Unknown]
  - Joint noise [Not Recovered/Not Resolved]
  - Contusion [Not Recovered/Not Resolved]
  - Fat tissue increased [Not Recovered/Not Resolved]
  - Hiatus hernia [Not Recovered/Not Resolved]
  - Arthralgia [Unknown]
  - Diabetes insipidus [Unknown]
  - Cyst [Unknown]

NARRATIVE: CASE EVENT DATE: 2016
